FAERS Safety Report 9934489 (Version 1)
Quarter: 2014Q1

REPORT INFORMATION
  Report Type: Spontaneous
  Country: JP (occurrence: None)
  Receive Date: 20140226
  Receipt Date: 20140226
  Transmission Date: 20141002
  Serious: Yes (Hospitalization)
  Sender: FDA-Public Use
  Company Number: 2010JP004037

PATIENT
  Age: 37 Year
  Sex: Female
  Weight: 58 kg

DRUGS (24)
  1. PROGRAF (TACROLIMUS) CAPSULE [Suspect]
     Indication: LUPUS NEPHRITIS
     Dosage: 2 MG, UNKNOWN/D, ORAL
     Route: 048
     Dates: start: 20120827, end: 20130226
  2. MEDROL [Suspect]
     Indication: LUPUS NEPHRITIS
     Dosage: 12 MG, UINKNOWN/D, ORAL
     Route: 048
     Dates: end: 20080218
  3. BONALON (ALENDRONATE SODIUM) [Concomitant]
     Dosage: 2 MG, UNKNOWN/D, ORAL
  4. ZANTAC (RANITIDINE HYDROCHLORIDE) [Concomitant]
  5. GASTER (FAMOTIDINE) ORODISPERSIBLE CR [Concomitant]
  6. SELBEX (TEPRENONE) [Concomitant]
  7. DIOVAN (VALSARTAN) [Concomitant]
  8. FERROMIA (FERROUS SODIUM CITRATE) [Concomitant]
  9. ISODINE (POVIDONE-IODINE) [Concomitant]
  10. ATELEC (CLINIDIPINE) [Concomitant]
  11. TERNELIN (TIZANIDINE HYDROCHLORIDE) [Concomitant]
  12. LOXONIN (LOXOPROFEN SODIUM) [Concomitant]
  13. MUCOSTA (REBAMIPIDE) [Concomitant]
  14. LOXONIN (LOXOPROFEN SODIUM) [Concomitant]
  15. CLARITH (CLARITHYROMYCIN) [Concomitant]
  16. RESPLEN (EPRAZINONE HYDROCHLORIDE) [Concomitant]
  17. MUCODYNE (CARBOCISTEINE) [Concomitant]
  18. OPISEZOL-CODEINE (DIHYDROCODEINE PHOSPHATE, GLYCYRRHIZA GLABRA EXTRACT, HERBAL EXTRACT NOS) [Concomitant]
  19. RINDERON-VG (BETAMETHASONE VALERATE, GENTAMICIN SULFATE) LOTION; REGIMEN #1 [Concomitant]
  20. TAKEPRON (LANSOPRAZOLE) ORODISPERSIBLE CR [Concomitant]
  21. BIO-THREE (BACILLUS MESENTERICUS, CLOSTRIDIUM BUTYRICUM, STREPTOCOCCUS FAECALIS) [Concomitant]
  22. PURSENID (SENNOSIDE A+B CALCIUM) [Concomitant]
  23. KERATINAMIN (UREA) [Concomitant]
  24. ALLELOCK (OLOPATADINE HYDROCHLORIDE) [Concomitant]

REACTIONS (16)
  - Visual field defect [None]
  - Hypertension [None]
  - Arthritis [None]
  - Upper respiratory tract inflammation [None]
  - Musculoskeletal stiffness [None]
  - Nasopharyngitis [None]
  - Rash [None]
  - Diarrhoea [None]
  - Constipation [None]
  - Vision blurred [None]
  - Retinal tear [None]
  - Hemianopia homonymous [None]
  - Hemianopia [None]
  - Lymphoma [None]
  - Leukoencephalopathy [None]
  - Dermatitis atopic [None]
